FAERS Safety Report 23402762 (Version 2)
Quarter: 2024Q3

REPORT INFORMATION
  Report Type: Spontaneous
  Country: CZ (occurrence: CZ)
  Receive Date: 20240115
  Receipt Date: 20240701
  Transmission Date: 20241017
  Serious: Yes (Other)
  Sender: TAKEDA
  Company Number: CZ-INCYTE CORPORATION-2024IN000201

PATIENT
  Sex: Male

DRUGS (10)
  1. ICLUSIG [Suspect]
     Active Substance: PONATINIB\PONATINIB HYDROCHLORIDE
     Indication: Philadelphia positive chronic myeloid leukaemia
     Dosage: 15 MILLIGRAM
     Route: 065
     Dates: start: 202007, end: 202104
  2. ICLUSIG [Suspect]
     Active Substance: PONATINIB\PONATINIB HYDROCHLORIDE
     Dosage: 15 MILLIGRAM
     Route: 065
     Dates: start: 202104, end: 202105
  3. ICLUSIG [Suspect]
     Active Substance: PONATINIB\PONATINIB HYDROCHLORIDE
     Dosage: 15 MILLIGRAM
     Route: 065
     Dates: start: 202105, end: 202204
  4. ICLUSIG [Suspect]
     Active Substance: PONATINIB\PONATINIB HYDROCHLORIDE
     Dosage: 15 MILLIGRAM
     Route: 065
     Dates: start: 202205
  5. ICLUSIG [Suspect]
     Active Substance: PONATINIB\PONATINIB HYDROCHLORIDE
     Dosage: UNK
     Route: 065
  6. ICLUSIG [Suspect]
     Active Substance: PONATINIB\PONATINIB HYDROCHLORIDE
     Dosage: 15 MILLIGRAM, QD
     Route: 065
     Dates: start: 202301
  7. ICLUSIG [Suspect]
     Active Substance: PONATINIB\PONATINIB HYDROCHLORIDE
     Dosage: 15 MILLIGRAM, QD
     Route: 065
     Dates: end: 202301
  8. CITALOPRAM [Concomitant]
     Active Substance: CITALOPRAM\CITALOPRAM HYDROBROMIDE
     Indication: Product used for unknown indication
     Dosage: UNK
     Route: 065
  9. BROMAZEPAM [Concomitant]
     Active Substance: BROMAZEPAM
     Indication: Product used for unknown indication
     Dosage: UNK
     Route: 065
  10. IBUPROFEN [Concomitant]
     Active Substance: IBUPROFEN
     Indication: Product used for unknown indication
     Dosage: UNK
     Route: 065

REACTIONS (15)
  - Diabetic metabolic decompensation [Recovering/Resolving]
  - Headache [Unknown]
  - Therapeutic response decreased [Unknown]
  - Photophobia [Unknown]
  - Cognitive disorder [Unknown]
  - Mobility decreased [Recovering/Resolving]
  - Treatment noncompliance [Unknown]
  - Drug intolerance [Unknown]
  - Drug ineffective [Unknown]
  - Abdominal pain [Unknown]
  - Fatigue [Unknown]
  - Eye pain [Unknown]
  - Ear pain [Unknown]
  - Asthenia [None]
  - Dry eye [Unknown]

NARRATIVE: CASE EVENT DATE: 20200101
